FAERS Safety Report 10572259 (Version 1)
Quarter: 2014Q4

REPORT INFORMATION
  Report Type: Report from Study
  Country: US (occurrence: US)
  Receive Date: 20141108
  Receipt Date: 20141108
  Transmission Date: 20150529
  Serious: Yes (Other)
  Sender: FDA-Public Use
  Company Number: US-CELGENE-USA-2014110459

PATIENT
  Age: 63 Year
  Sex: Female
  Weight: 138 kg

DRUGS (1)
  1. REVLIMID [Suspect]
     Active Substance: LENALIDOMIDE
     Indication: PLASMA CELL MYELOMA
     Route: 048

REACTIONS (2)
  - Toxicity to various agents [Unknown]
  - Unevaluable event [Unknown]
